FAERS Safety Report 7037316-9 (Version None)
Quarter: 2010Q4

REPORT INFORMATION
  Report Type: 
  Country: None (occurrence: None)
  Receive Date: 20101011
  Receipt Date: 20101001
  Transmission Date: 20110411
  Serious: Yes (Other)
  Sender: FDA-Public Use
  Company Number: IT-MPIJNJ-2010-05073

PATIENT

DRUGS (3)
  1. VELCADE [Suspect]
     Indication: MULTIPLE MYELOMA
     Dosage: 2.2 MG, UNK
     Route: 042
     Dates: start: 20100521, end: 20101001
  2. VELCADE [Suspect]
     Dosage: 1 MG/M2, UNK
  3. VELCADE [Suspect]
     Dosage: 0.7 MG/M2, UNK

REACTIONS (2)
  - DYSAESTHESIA [None]
  - NEUROTOXICITY [None]
